FAERS Safety Report 10548076 (Version 2)
Quarter: 2014Q4

REPORT INFORMATION
  Report Type: Report from Study
  Country: CL (occurrence: CL)
  Receive Date: 20141028
  Receipt Date: 20141107
  Transmission Date: 20150529
  Serious: Yes (Death, Other)
  Sender: FDA-Public Use
  Company Number: PHHY2014CL139261

PATIENT
  Age: 17 Year
  Sex: Female
  Weight: 39 kg

DRUGS (1)
  1. GLIVEC [Suspect]
     Active Substance: IMATINIB MESYLATE
     Indication: ACUTE LYMPHOCYTIC LEUKAEMIA
     Dosage: 600 MG, UNK
     Route: 048
     Dates: start: 201403, end: 201408

REACTIONS (4)
  - Abortion spontaneous [Unknown]
  - Leukaemia recurrent [Unknown]
  - Maternal exposure during pregnancy [Unknown]
  - Death [Fatal]

NARRATIVE: CASE EVENT DATE: 201403
